FAERS Safety Report 12600353 (Version 2)
Quarter: 2016Q3

REPORT INFORMATION
  Report Type: Report from Study
  Country: US (occurrence: US)
  Receive Date: 20160727
  Receipt Date: 20160825
  Transmission Date: 20161109
  Serious: Yes (Death, Hospitalization, Other)
  Sender: FDA-Public Use
  Company Number: US-ARIAD PHARMACEUTICALS, INC-2015US005785

PATIENT
  Sex: Male

DRUGS (3)
  1. ICLUSIG [Suspect]
     Active Substance: PONATINIB
     Dosage: 45 MG, QD
     Route: 048
  2. ICLUSIG [Suspect]
     Active Substance: PONATINIB
     Indication: CHRONIC MYELOID LEUKAEMIA
     Dosage: 45 MG, QD
     Route: 048
     Dates: start: 20151104
  3. ICLUSIG [Suspect]
     Active Substance: PONATINIB
     Dosage: 45 MG, QD
     Route: 048

REACTIONS (25)
  - Pancytopenia [Unknown]
  - Cough [Unknown]
  - Headache [Unknown]
  - Traumatic fracture [Unknown]
  - Leukaemic infiltration [Unknown]
  - Pyrexia [Unknown]
  - Stem cell transplant [Unknown]
  - Graft versus host disease [Unknown]
  - Treatment failure [Unknown]
  - Rash maculo-papular [Unknown]
  - Bone disorder [Unknown]
  - Wheelchair user [Unknown]
  - Neutropenia [Unknown]
  - Chronic myeloid leukaemia recurrent [Unknown]
  - Bone marrow transplant [Unknown]
  - Coronavirus test positive [Unknown]
  - Radiculopathy [Unknown]
  - Immunosuppression [Unknown]
  - Back pain [Unknown]
  - Diarrhoea [Recovered/Resolved]
  - Death [Fatal]
  - Hospitalisation [Unknown]
  - Substance-induced psychotic disorder [Unknown]
  - Spinal fracture [Unknown]
  - Sinusitis [Unknown]
